FAERS Safety Report 7433548-6 (Version None)
Quarter: 2011Q2

REPORT INFORMATION
  Report Type: 
  Country: None (occurrence: None)
  Receive Date: 20110422
  Receipt Date: 20110311
  Transmission Date: 20111010
  Serious: Yes (Hospitalization)
  Sender: FDA-Public Use
  Company Number: PHBS2005JP14306

PATIENT
  Sex: Male
  Weight: 50 kg

DRUGS (11)
  1. CELLCEPT [Suspect]
     Indication: RENAL TRANSPLANT
     Dosage: 1500 MG,
     Route: 048
     Dates: start: 20031117
  2. SIMULECT [Suspect]
     Dosage: 20 MG,
     Route: 042
     Dates: start: 20031121, end: 20031121
  3. PROGRAF [Concomitant]
     Indication: RENAL TRANSPLANT
     Dosage: 8 MG,
     Route: 048
     Dates: start: 20031114
  4. CELLCEPT [Suspect]
     Dosage: 1000 MG, DAILY
     Dates: start: 20031118
  5. MEDROL [Suspect]
     Indication: RENAL TRANSPLANT
     Dosage: UNK
     Route: 048
     Dates: start: 20031118
  6. STEROIDS NOS [Suspect]
     Indication: RENAL TRANSPLANT
     Route: 048
     Dates: start: 20031117
  7. PROGRAF [Concomitant]
     Dosage: 12 MG, DAILY
     Route: 048
     Dates: start: 20031124
  8. TACROLIMUS [Suspect]
     Indication: RENAL TRANSPLANT
     Route: 048
     Dates: start: 20031117
  9. SOLU-MEDROL [Suspect]
     Dosage: 500 MG,
     Route: 042
     Dates: start: 20031117
  10. PROGRAF [Concomitant]
     Dosage: 3 MG, DAILY
     Route: 042
     Dates: start: 20031117
  11. SIMULECT [Suspect]
     Indication: RENAL TRANSPLANT
     Dosage: 20 MG,
     Route: 042
     Dates: start: 20031117, end: 20031117

REACTIONS (8)
  - HYPERHIDROSIS [None]
  - VANILLYL MANDELIC ACID URINE INCREASED [None]
  - CATECHOLAMINES URINE INCREASED [None]
  - BLOOD CATECHOLAMINES INCREASED [None]
  - PHAEOCHROMOCYTOMA [None]
  - DIABETES MELLITUS [None]
  - HYPERTENSION [None]
  - DYSPEPSIA [None]
